FAERS Safety Report 11617851 (Version 2)
Quarter: 2015Q4

REPORT INFORMATION
  Report Type: Spontaneous
  Country: CZ (occurrence: CZ)
  Receive Date: 20151009
  Receipt Date: 20151020
  Transmission Date: 20160304
  Serious: Yes (Hospitalization)
  Sender: FDA-Public Use
  Company Number: CZ-ASTRAZENECA-2015SE95319

PATIENT
  Age: 65 Year
  Sex: Male
  Weight: 79 kg

DRUGS (18)
  1. VENTOLIN [Suspect]
     Active Substance: ALBUTEROL SULFATE
     Indication: ASTHMA
     Dosage: 100 UG TWO INHALATIONS AS REQUIRED
     Route: 055
     Dates: start: 20150702
  2. SINGULAIR [Concomitant]
     Active Substance: MONTELUKAST SODIUM
     Indication: ASTHMA
     Route: 048
     Dates: start: 2008
  3. XYZAL [Concomitant]
     Active Substance: LEVOCETIRIZINE DIHYDROCHLORIDE
     Indication: HYPERSENSITIVITY
     Route: 048
     Dates: start: 2008
  4. BUDESONID [Suspect]
     Active Substance: BUDESONIDE
     Indication: ASTHMA
     Route: 055
     Dates: start: 2008
  5. TELMISARTAN. [Concomitant]
     Active Substance: TELMISARTAN
     Indication: HYPERTENSION
     Route: 048
     Dates: start: 2010
  6. GLYCOPYRRONIUM BROMIDE [Concomitant]
     Active Substance: GLYCOPYRRONIUM
     Indication: ASTHMA
     Dates: start: 2014
  7. PREDNISOLONE. [Concomitant]
     Active Substance: PREDNISOLONE
     Indication: ASTHMA
     Route: 048
     Dates: start: 2008
  8. NORMAL SALINE [Concomitant]
     Active Substance: SODIUM CHLORIDE
     Indication: ASTHMA
     Route: 042
     Dates: start: 20150929, end: 20151001
  9. NOLPAZA [Concomitant]
     Active Substance: PANTOPRAZOLE SODIUM
     Indication: PROPHYLAXIS AGAINST GASTROINTESTINAL ULCER
     Route: 048
     Dates: start: 2008
  10. XADOS [Concomitant]
     Indication: HYPERSENSITIVITY
     Route: 048
     Dates: start: 2014
  11. DAXAS [Concomitant]
     Active Substance: ROFLUMILAST
     Indication: ASTHMA
     Route: 048
     Dates: start: 2014
  12. SOLU-MEDROL [Concomitant]
     Active Substance: METHYLPREDNISOLONE SODIUM SUCCINATE
     Indication: ASTHMA
     Route: 042
     Dates: start: 20150929, end: 20151001
  13. MEDI9929 CODE NOT BROKEN [Suspect]
     Active Substance: TEZEPELUMAB
     Indication: ASTHMA
     Route: 058
     Dates: start: 20150806
  14. AVAMYS NASAL SPRAY [Concomitant]
     Active Substance: FLUTICASONE FUROATE
     Indication: SINUSITIS
     Route: 045
     Dates: start: 2009
  15. APO-TAMIS [Concomitant]
     Indication: BENIGN PROSTATIC HYPERPLASIA
     Route: 048
     Dates: start: 2010
  16. RHEFLUIN [Concomitant]
     Indication: HYPERTENSION
     Route: 048
     Dates: start: 2010
  17. SYNTOPHYLLIN (AMINOPHYLLINE) [Suspect]
     Active Substance: AMINOPHYLLINE
     Indication: ASTHMA
     Route: 042
     Dates: start: 20150929, end: 20151001
  18. FORMOTEROL FUMARATE DIHYDRATE [Suspect]
     Active Substance: FORMOTEROL FUMARATE DIHYDRATE
     Indication: ASTHMA
     Route: 055
     Dates: start: 2008

REACTIONS (1)
  - Atrial fibrillation [Unknown]

NARRATIVE: CASE EVENT DATE: 20151001
